FAERS Safety Report 20693244 (Version 1)
Quarter: 2022Q2

REPORT INFORMATION
  Report Type: Report from Study
  Country: AU (occurrence: AU)
  Receive Date: 20220410
  Receipt Date: 20220410
  Transmission Date: 20220720
  Serious: Yes (Other)
  Sender: FDA-Public Use
  Company Number: AU-NOVARTISPH-NVSC2022AU036587

PATIENT
  Age: 68 Year
  Sex: Female

DRUGS (1)
  1. COSENTYX [Suspect]
     Active Substance: SECUKINUMAB
     Indication: Ankylosing spondylitis
     Dosage: 150 MG, QW (LOADING PAHSE WITH 4 DOSES)
     Route: 058
     Dates: start: 20220121

REACTIONS (7)
  - Arthralgia [Unknown]
  - Back pain [Unknown]
  - Hypothyroidism [Unknown]
  - Weight increased [Unknown]
  - Rash [Unknown]
  - Herpes zoster [Unknown]
  - Insomnia [Unknown]

NARRATIVE: CASE EVENT DATE: 20220208
